FAERS Safety Report 22333340 (Version 2)
Quarter: 2023Q2

REPORT INFORMATION
  Report Type: Spontaneous
  Country: IE (occurrence: IE)
  Receive Date: 20230517
  Receipt Date: 20230531
  Transmission Date: 20230722
  Serious: No
  Sender: FDA-Public Use
  Company Number: IE-CELLTRION HEALTHCARE HUNGARY KFT-2023IE008496

PATIENT
  Age: 56 Year
  Sex: Female
  Weight: 121 kg

DRUGS (5)
  1. REMICADE [Suspect]
     Active Substance: INFLIXIMAB
     Indication: Hidradenitis
     Route: 041
  2. ADALIMUMAB [Suspect]
     Active Substance: ADALIMUMAB
     Indication: Hidradenitis
     Dosage: DOSAGE1: UNIT=NOT AVAILABLE
  3. PREDNISOLONE [Suspect]
     Active Substance: PREDNISOLONE
     Indication: Product used for unknown indication
  4. BRODALUMAB [Suspect]
     Active Substance: BRODALUMAB
     Indication: Hidradenitis
     Dosage: FORTNIGHTLY BRODALUMAB 210MG FOLLOWING THE LICENSED PSORIASIS LOADING DOSE 210MG AT WEEK 0, 1 AND 2
  5. LYMECYCLINE [Concomitant]
     Active Substance: LYMECYCLINE
     Indication: Product used for unknown indication

REACTIONS (1)
  - Off label use [Unknown]
